FAERS Safety Report 4725361-5 (Version None)
Quarter: 2005Q3

REPORT INFORMATION
  Report Type: 
  Country: None (occurrence: None)
  Receive Date: 20050721
  Receipt Date: 20050603
  Transmission Date: 20060218
  Serious: No
  Sender: FDA-Public Use
  Company Number: 2005SP001274

PATIENT
  Sex: Male

DRUGS (6)
  1. LUNESTA [Suspect]
     Dosage: 2  MG; HS; ORAL,  3 MG; HS; ORAL
     Route: 048
     Dates: start: 20050101, end: 20050101
  2. LUNESTA [Suspect]
     Dosage: 2  MG; HS; ORAL,  3 MG; HS; ORAL
     Route: 048
     Dates: start: 20050101
  3. KLONOPIN [Concomitant]
  4. ZANAFLEX [Concomitant]
  5. VICODIN [Concomitant]
  6. PROTONIX [Concomitant]

REACTIONS (2)
  - DRUG INEFFECTIVE [None]
  - INSOMNIA [None]
